FAERS Safety Report 6095417-6 (Version None)
Quarter: 2009Q1

REPORT INFORMATION
  Report Type: 
  Country: None (occurrence: None)
  Receive Date: 20090227
  Receipt Date: 20080327
  Transmission Date: 20090719
  Serious: No
  Sender: FDA-Public Use
  Company Number: A0717861A

PATIENT
  Sex: Male

DRUGS (3)
  1. LAMICTAL [Suspect]
     Indication: DRUG USE FOR UNKNOWN INDICATION
     Route: 048
     Dates: end: 20080301
  2. DEPAKOTE [Concomitant]
  3. UNKNOWN MEDICATION [Concomitant]

REACTIONS (2)
  - DELUSION OF GRANDEUR [None]
  - RASH ERYTHEMATOUS [None]
